FAERS Safety Report 8325404-6 (Version None)
Quarter: 2012Q2

REPORT INFORMATION
  Report Type: 
  Country: None (occurrence: None)
  Receive Date: 20120501
  Receipt Date: 20100421
  Transmission Date: 20120825
  Serious: No
  Sender: FDA-Public Use
  Company Number: US-TEVA-2010002333

PATIENT
  Sex: Female

DRUGS (3)
  1. FEMHRT-28 [Concomitant]
  2. SYNTHROID [Concomitant]
     Indication: THYROID DISORDER
     Dates: start: 19880101
  3. NUVIGIL [Suspect]
     Indication: FATIGUE
     Dosage: 250 MILLIGRAM;
     Route: 048
     Dates: start: 20100420

REACTIONS (4)
  - NAUSEA [None]
  - DIZZINESS [None]
  - HEADACHE [None]
  - INSOMNIA [None]
